FAERS Safety Report 5108142-2 (Version None)
Quarter: 2006Q3

REPORT INFORMATION
  Report Type: 
  Country: None (occurrence: None)
  Receive Date: 20060919
  Receipt Date: 20060911
  Transmission Date: 20061208
  Serious: Yes (Other)
  Sender: FDA-Public Use
  Company Number: ZA-GLAXOSMITHKLINE-B0438178A

PATIENT
  Sex: Female

DRUGS (1)
  1. ZYBAN [Suspect]
     Dosage: 150MG TWICE PER DAY
     Dates: start: 20060901

REACTIONS (4)
  - DIZZINESS [None]
  - DRY MOUTH [None]
  - HALLUCINATION [None]
  - INSOMNIA [None]
